FAERS Safety Report 6983858-1 (Version None)
Quarter: 2010Q3

REPORT INFORMATION
  Report Type: 
  Country: None (occurrence: None)
  Receive Date: 20100914
  Receipt Date: 20090402
  Transmission Date: 20110219
  Serious: Yes (Other)
  Sender: FDA-Public Use
  Company Number: US-WYE-H08171009

PATIENT
  Sex: Female
  Weight: 95.34 kg

DRUGS (14)
  1. TORISEL [Suspect]
     Route: 042
     Dates: start: 20090119, end: 20090210
  2. LASIX [Concomitant]
  3. INSULIN [Concomitant]
  4. GLIPIZIDE [Concomitant]
  5. ZANTAC [Concomitant]
  6. MAGNESIUM [Concomitant]
  7. SIMVASTATIN [Concomitant]
  8. LOVAZA [Concomitant]
  9. DIGOXIN [Concomitant]
  10. ACETYLSALICYLIC ACID [Concomitant]
  11. FIBRE, DIETARY [Concomitant]
  12. CALCIUM [Concomitant]
  13. CALCITRIOL [Concomitant]
  14. AMLODIPINE [Concomitant]

REACTIONS (1)
  - RENAL FAILURE ACUTE [None]
